FAERS Safety Report 12093235 (Version 2)
Quarter: 2016Q2

REPORT INFORMATION
  Report Type: Report from Study
  Country: GB (occurrence: GB)
  Receive Date: 20160219
  Receipt Date: 20160408
  Transmission Date: 20160815
  Serious: Yes (Hospitalization)
  Sender: FDA-Public Use
  Company Number: PHHO2015GB001954

PATIENT
  Age: 13 Year
  Sex: Male
  Weight: 42.2 kg

DRUGS (4)
  1. AFINITOR [Suspect]
     Active Substance: EVEROLIMUS
     Indication: EPILEPSY
     Dosage: CODE NOT BROKEN
     Route: 048
     Dates: start: 20141114
  2. CLOBAZAM [Concomitant]
     Active Substance: CLOBAZAM
     Indication: EPILEPSY
     Dosage: 5 MG, UNK
     Route: 065
     Dates: start: 20130618
  3. BLINDED NO TREATMENT RECEIVED [Suspect]
     Active Substance: INVESTIGATIONAL PRODUCT
     Indication: EPILEPSY
     Dosage: CODE NOT BROKEN
     Route: 048
     Dates: start: 20141114
  4. BLINDED PLACEBO [Suspect]
     Active Substance: INVESTIGATIONAL PRODUCT
     Indication: EPILEPSY
     Dosage: CODE NOT BROKEN
     Route: 048
     Dates: start: 20141114

REACTIONS (1)
  - Status epilepticus [Recovered/Resolved]

NARRATIVE: CASE EVENT DATE: 20150122
